FAERS Safety Report 7744865 (Version 2)
Quarter: 2021Q1

REPORT INFORMATION
  Report Type: Spontaneous
  Country: US (occurrence: US)
  Receive Date: 20101230
  Receipt Date: 20210122
  Transmission Date: 20210420
  Serious: Yes (Death, Other)
  Sender: FDA-Public Use
  Company Number: US-PURDUE-USA-2010-0060881

PATIENT
  Age: 40 Year
  Sex: Male
  Weight: 71.66 kg

DRUGS (5)
  1. COCAINE [Suspect]
     Active Substance: COCAINE
     Indication: PRODUCT USED FOR UNKNOWN INDICATION
     Dosage: UNK
     Route: 065
  2. OXYCONTIN [Suspect]
     Active Substance: OXYCODONE HYDROCHLORIDE
     Dosage: 40 MG, BID
     Dates: start: 2001
  3. OXYCODONE HYDROCHLORIDE (SIMILAR TO NDA 20?553) [Suspect]
     Active Substance: OXYCODONE HYDROCHLORIDE
     Indication: PAIN
     Route: 048
  4. OXYCONTIN [Suspect]
     Active Substance: OXYCODONE HYDROCHLORIDE
     Indication: PAIN
     Dosage: 270 MG, DAILY
     Route: 048
  5. SUBOXONE [Concomitant]
     Active Substance: BUPRENORPHINE HYDROCHLORIDE\NALOXONE HYDROCHLORIDE
     Route: 065

REACTIONS (11)
  - Spinal operation [Unknown]
  - Anxiety [Unknown]
  - Spinal fusion surgery [Unknown]
  - Drug abuse [Unknown]
  - Skeletal injury [Unknown]
  - Toxicity to various agents [Fatal]
  - Fall [Unknown]
  - Intervertebral disc operation [Unknown]
  - Muscular weakness [Unknown]
  - Drug tolerance increased [Unknown]
  - Monoplegia [Unknown]

NARRATIVE: CASE EVENT DATE: 2001
